FAERS Safety Report 9101296 (Version 1)
Quarter: 2013Q1

REPORT INFORMATION
  Report Type: Spontaneous
  Country: CA (occurrence: CA)
  Receive Date: 20130215
  Receipt Date: 20130215
  Transmission Date: 20140127
  Serious: Yes (Other)
  Sender: FDA-Public Use
  Company Number: CA-TEVA-386654USA

PATIENT
  Age: 59 Year
  Sex: Female

DRUGS (13)
  1. ALENDRONIC ACID [Suspect]
     Dosage: 10 MILLIGRAM DAILY;
     Route: 048
  2. PREDNISONE [Concomitant]
     Route: 065
  3. ATIVAN [Concomitant]
     Route: 065
  4. AVELOX [Concomitant]
     Route: 065
  5. NASONEX [Concomitant]
     Dosage: SPRAY, METERED DOSE
     Route: 065
  6. MCAL [Concomitant]
     Route: 065
  7. IPRA SAL UDV [Concomitant]
     Route: 065
  8. SALBUTAMOL [Concomitant]
     Route: 065
  9. SPIRIVA [Concomitant]
     Route: 055
  10. SYMBICORT [Concomitant]
     Dosage: 200 TURBUHALER; POWDER
  11. TEVA-LANSOPRAZOLE [Concomitant]
     Dosage: CAPSULE, DELAYED RELEASE
     Route: 065
  12. TIAZAC [Concomitant]
     Dosage: TABLET (EXTENDED RELEASE)
     Route: 065
  13. VENTOLIN HFA [Concomitant]
     Dosage: METERED-DOSE (AEROSOL)
     Route: 055

REACTIONS (1)
  - Skin plaque [Recovered/Resolved]
